FAERS Safety Report 12907831 (Version 2)
Quarter: 2017Q3

REPORT INFORMATION
  Report Type: Spontaneous
  Country: US (occurrence: US)
  Receive Date: 20161103
  Receipt Date: 20170711
  Transmission Date: 20171127
  Serious: No
  Sender: FDA-Public Use
  Company Number: US-PFIZER INC-2016454309

PATIENT
  Age: 50 Year
  Sex: Female
  Weight: 77.46 kg

DRUGS (2)
  1. IBRANCE [Suspect]
     Active Substance: PALBOCICLIB
     Indication: BREAST CANCER METASTATIC
     Dosage: 125 MG, CYCLIC (D1-D21, Q28 D)
     Route: 048
     Dates: start: 20151219
  2. IBRANCE [Suspect]
     Active Substance: PALBOCICLIB
     Dosage: 125 MG, CYCLIC (D1-D21 Q28 D)
     Route: 048
     Dates: start: 20151219

REACTIONS (3)
  - Drug dose omission [Unknown]
  - Oral pain [Unknown]
  - Fatigue [Unknown]
